FAERS Safety Report 14297650 (Version 2)
Quarter: 2018Q1

REPORT INFORMATION
  Report Type: Spontaneous
  Country: FR (occurrence: FR)
  Receive Date: 20171218
  Receipt Date: 20180215
  Transmission Date: 20180509
  Serious: Yes (Hospitalization)
  Sender: FDA-Public Use
  Company Number: FR-OTSUKA-2017_020617

PATIENT
  Sex: Female

DRUGS (7)
  1. VALIUM [Concomitant]
     Active Substance: DIAZEPAM
     Indication: PRODUCT USED FOR UNKNOWN INDICATION
     Dosage: 10 MG, QD (0.5 TAB AT BEDTIME)
     Route: 048
  2. SERESTA [Concomitant]
     Active Substance: OXAZEPAM
     Dosage: 50 MG, QD (1 IN THE EVENING)
     Route: 048
  3. ABILIFY MAINTENA [Suspect]
     Active Substance: ARIPIPRAZOLE
     Indication: BIPOLAR I DISORDER
  4. SERESTA [Concomitant]
     Active Substance: OXAZEPAM
     Indication: PRODUCT USED FOR UNKNOWN INDICATION
     Dosage: 10 MG, QD (0.5TAB IN THE MORNING AND 0.5 TAB AT NOON)
     Route: 048
  5. ABILIFY MAINTENA [Suspect]
     Active Substance: ARIPIPRAZOLE
     Indication: PSYCHOTIC DISORDER
     Dosage: 400 MG, QM (ONCE MONTHLY)
     Route: 030
  6. ZOLOFT [Suspect]
     Active Substance: SERTRALINE HYDROCHLORIDE
     Indication: ANTIDEPRESSANT THERAPY
     Dosage: 50 MG, BID (TWICE IN THE MORNING)
     Route: 048
  7. THERALENE [Concomitant]
     Active Substance: TRIMEPRAZINE
     Indication: INSOMNIA
     Dosage: 45 GTT, QD
     Route: 048

REACTIONS (3)
  - Euphoric mood [Recovered/Resolved]
  - Product use in unapproved indication [Unknown]
  - Insomnia [Unknown]
